FAERS Safety Report 7712937-6 (Version None)
Quarter: 2011Q3

REPORT INFORMATION
  Report Type: 
  Country: None (occurrence: None)
  Receive Date: 20110826
  Receipt Date: 20110813
  Transmission Date: 20111222
  Serious: Yes (Death)
  Sender: FDA-Public Use
  Company Number: PHHY2011GB75274

PATIENT

DRUGS (1)
  1. CLOZAPINE [Suspect]
     Indication: MENTAL DISORDER

REACTIONS (1)
  - DIABETIC KETOACIDOSIS [None]
